FAERS Safety Report 8346458-7 (Version None)
Quarter: 2012Q2

REPORT INFORMATION
  Report Type: 
  Country: None (occurrence: None)
  Receive Date: 20120509
  Receipt Date: 20120504
  Transmission Date: 20120825
  Serious: Yes (Death)
  Sender: FDA-Public Use
  Company Number: US-PFIZER INC-2012111184

PATIENT
  Sex: Male

DRUGS (1)
  1. XALKORI [Suspect]
     Indication: PANCREATIC CARCINOMA
     Dosage: 1 CAPSULE, 2X/DAY
     Dates: start: 20120131

REACTIONS (1)
  - DEATH [None]
